FAERS Safety Report 22079962 (Version 1)
Quarter: 2023Q1

REPORT INFORMATION
  Report Type: Spontaneous
  Country: US (occurrence: None)
  Receive Date: 20230308
  Receipt Date: 20230308
  Transmission Date: 20230417
  Serious: No
  Sender: FDA-Public Use
  Company Number: None

PATIENT
  Age: 51 Year
  Sex: Female
  Weight: 66.0 kg

DRUGS (9)
  1. TEMOZOLOMIDE [Suspect]
     Active Substance: TEMOZOLOMIDE
     Indication: Brain neoplasm malignant
     Dosage: FREQUENCY : DAILY;?
     Route: 048
  2. DILANTIN [Concomitant]
  3. MAGNESIUM CHLORIDE [Concomitant]
  4. ONDANSETRON [Concomitant]
  5. SUPER VITAMIN COMPLEX [Concomitant]
  6. VITAMIN D3 [Concomitant]
  7. VITAMIN B12 [Concomitant]
     Active Substance: CYANOCOBALAMIN
  8. WOMENS MULTIVITAMIN [Concomitant]
  9. ZINC GLUCONATE [Concomitant]

REACTIONS (2)
  - Gastroenteritis viral [None]
  - Full blood count decreased [None]
